FAERS Safety Report 19847453 (Version 1)
Quarter: 2021Q3

REPORT INFORMATION
  Report Type: Spontaneous
  Country: FR (occurrence: FR)
  Receive Date: 20210917
  Receipt Date: 20210917
  Transmission Date: 20211014
  Serious: Yes (Hospitalization)
  Sender: FDA-Public Use
  Company Number: FR-MYLANLABS-2021M1062541

PATIENT
  Age: 31 Year
  Sex: Male

DRUGS (5)
  1. LAMALINE                           /00764901/ [Suspect]
     Active Substance: ACETAMINOPHEN\BELLADONNA LEAF\CAFFEINE\OPIUM
     Indication: PRODUCT USED FOR UNKNOWN INDICATION
     Dosage: 4 DOSAGE FORM, PRISE UNIQUE
     Route: 048
     Dates: start: 20210405, end: 20210405
  2. TRAMADOL. [Suspect]
     Active Substance: TRAMADOL
     Indication: TOOTHACHE
     Dosage: 5 DOSAGE FORM, PRISE UNIQUE
     Route: 048
     Dates: start: 20210405, end: 20210405
  3. TAKADOL [Suspect]
     Active Substance: TRAMADOL
     Indication: PRODUCT USED FOR UNKNOWN INDICATION
     Dosage: 1 DOSAGE FORM PRISE UNIQUE
     Route: 048
     Dates: start: 20210405, end: 20210405
  4. DOLIPRANE [Suspect]
     Active Substance: ACETAMINOPHEN
     Indication: TOOTHACHE
     Dosage: 7 GRAM, 1 PRISE UNIQUE
     Route: 048
     Dates: start: 20210405, end: 20210405
  5. NUROFEN                            /00109201/ [Suspect]
     Active Substance: IBUPROFEN
     Indication: TOOTHACHE
     Dosage: 6 DOSAGE FORM PRISE UNIQUE
     Route: 048
     Dates: start: 20210405, end: 20210405

REACTIONS (4)
  - Abdominal pain upper [Recovered/Resolved]
  - Somnolence [Recovered/Resolved]
  - Nausea [Recovered/Resolved]
  - Accidental overdose [Recovered/Resolved]

NARRATIVE: CASE EVENT DATE: 20210405
